FAERS Safety Report 7928530-6 (Version None)
Quarter: 2011Q4

REPORT INFORMATION
  Report Type: 
  Country: None (occurrence: None)
  Receive Date: 20111118
  Receipt Date: 20111108
  Transmission Date: 20120403
  Serious: Yes (Hospitalization)
  Sender: FDA-Public Use
  Company Number: GB-GLAXOSMITHKLINE-B0745534A

PATIENT
  Sex: Female

DRUGS (15)
  1. OMEPRAZOLE [Concomitant]
     Dosage: 20MG PER DAY
  2. ASMASAL [Concomitant]
     Dosage: 2PUFF AS REQUIRED
  3. PREDNISOLONE [Concomitant]
     Dosage: 5MG TWICE PER DAY
  4. LANOXIN [Concomitant]
     Dosage: 62.5MCG TWICE PER DAY
  5. ISOSORBIDE MONONITRATE [Concomitant]
     Dosage: 60MG TWICE PER DAY
  6. FEXOFENADINE HCL [Concomitant]
     Dosage: 120MG PER DAY
  7. ACETAMINOPHEN [Concomitant]
     Dosage: 500MG AS REQUIRED
  8. ALENDRONIC ACID [Concomitant]
     Dosage: 70MG WEEKLY
  9. LETROZOLE [Concomitant]
     Dosage: 2.5MG PER DAY
  10. FUROSEMIDE [Concomitant]
     Dosage: 40MG PER DAY
  11. VENTOLIN [Suspect]
     Indication: ASTHMA
     Route: 055
  12. FLUTICASONE PROPIONATE/SALMETEROL [Concomitant]
     Dosage: 2PUFF TWICE PER DAY
     Route: 055
  13. WARFARIN SODIUM [Concomitant]
  14. BECONASE AQUEOUS [Concomitant]
     Route: 045
  15. CALCEOS [Concomitant]
     Dosage: 1TAB TWICE PER DAY

REACTIONS (6)
  - ASTHMA [None]
  - LEFT VENTRICULAR FAILURE [None]
  - THROAT TIGHTNESS [None]
  - LOWER RESPIRATORY TRACT INFECTION [None]
  - ATRIAL FIBRILLATION [None]
  - CANDIDIASIS [None]
